FAERS Safety Report 15483884 (Version 2)
Quarter: 2018Q4

REPORT INFORMATION
  Report Type: Spontaneous
  Country: GB (occurrence: GB)
  Receive Date: 20181010
  Receipt Date: 20181217
  Transmission Date: 20190205
  Serious: Yes (Other)
  Sender: FDA-Public Use
  Company Number: GB-TEVA-2018-GB-962892

PATIENT
  Age: 33 Year
  Sex: Female
  Weight: 75 kg

DRUGS (4)
  1. PROCHLORPERAZINE. [Concomitant]
     Active Substance: PROCHLORPERAZINE
     Dosage: 3 DOSAGE FORMS DAILY;
     Route: 065
     Dates: start: 20180910, end: 20180911
  2. AMOXICILLIN. [Suspect]
     Active Substance: AMOXICILLIN
     Dates: start: 20180913
  3. CLARITHROMYCIN. [Concomitant]
     Active Substance: CLARITHROMYCIN
     Dosage: 2 DOSAGE FORMS DAILY;
     Route: 065
     Dates: start: 20180913
  4. AMOXICILLIN. [Concomitant]
     Active Substance: AMOXICILLIN
     Dosage: 3 DOSAGE FORMS DAILY;
     Route: 065
     Dates: start: 20180910

REACTIONS (3)
  - Chapped lips [Recovering/Resolving]
  - Lip pain [Recovering/Resolving]
  - Lip swelling [Recovering/Resolving]

NARRATIVE: CASE EVENT DATE: 20180913
